FAERS Safety Report 5161446-X (Version None)
Quarter: 2006Q4

REPORT INFORMATION
  Report Type: 
  Country: None (occurrence: None)
  Receive Date: 20061130
  Receipt Date: 20060809
  Transmission Date: 20070319
  Serious: Yes (Life-Threatening, Disabling, Other)
  Sender: FDA-Public Use
  Company Number: US-GLAXOSMITHKLINE-A0616029A

PATIENT
  Age: 17 Year
  Sex: Female

DRUGS (2)
  1. WELLBUTRIN XL [Suspect]
     Indication: DEPRESSION
     Dosage: 300MG UNKNOWN
     Route: 048
     Dates: start: 20060710, end: 20060801
  2. ADDERALL 10 [Concomitant]
     Dosage: 20MG UNKNOWN
     Route: 048

REACTIONS (3)
  - FACE OEDEMA [None]
  - HYPERSENSITIVITY [None]
  - RASH GENERALISED [None]
